FAERS Safety Report 6675538-7 (Version None)
Quarter: 2010Q2

REPORT INFORMATION
  Report Type: 
  Country: None (occurrence: None)
  Receive Date: 20100409
  Receipt Date: 20100402
  Transmission Date: 20101027
  Serious: Yes (Other)
  Sender: FDA-Public Use
  Company Number: FR-TEVA-227259ISR

PATIENT
  Sex: Female

DRUGS (9)
  1. AZILECT [Suspect]
     Indication: PARKINSON'S DISEASE
     Route: 048
     Dates: start: 20100201, end: 20100204
  2. AZILECT [Suspect]
     Route: 048
     Dates: start: 20100208, end: 20100210
  3. MEBEVERINE HYDROCHLORIDE [Concomitant]
     Indication: GASTROINTESTINAL DISORDER
     Dates: start: 19820101
  4. OMEPRAZOLE [Concomitant]
     Indication: GASTROOESOPHAGEAL REFLUX DISEASE
     Dates: start: 19840101
  5. LOPERAMIDE HYDROCHLORIDE [Concomitant]
     Indication: DIARRHOEA
     Dates: start: 19840101
  6. NIFUROXAZIDE [Concomitant]
     Indication: DIARRHOEA
     Dates: start: 19990101
  7. LEVOTHYROXINE SODIUM [Concomitant]
     Indication: HYPOTHYROIDISM
     Dates: start: 19820101
  8. PROPRANOLOL [Concomitant]
     Indication: TACHYCARDIA
     Dates: start: 19970101
  9. BROMAZEPAM [Concomitant]
     Indication: ANXIETY
     Dosage: 0.25 TAB
     Dates: start: 20030101

REACTIONS (2)
  - OBSESSIVE THOUGHTS [None]
  - SUICIDAL IDEATION [None]
